FAERS Safety Report 7878469 (Version 4)
Quarter: 2014Q1

REPORT INFORMATION
  Report Type: Spontaneous
  Country: US (occurrence: US)
  Receive Date: 20110330
  Receipt Date: 20140320
  Transmission Date: 20141002
  Serious: Yes (Hospitalization)
  Sender: FDA-Public Use
  Company Number: US-BAYER-2011-026975

PATIENT
  Age: 31 Year
  Sex: Female

DRUGS (15)
  1. YAZ [Suspect]
     Indication: PREMENSTRUAL DYSPHORIC DISORDER
     Dosage: UNK
     Dates: start: 200609, end: 201002
  2. YAZ [Suspect]
     Indication: PREMENSTRUAL SYNDROME
  3. INDERAL LA [Concomitant]
     Indication: MIGRAINE
     Dosage: UNK, QD
     Route: 048
     Dates: start: 20100201
  4. FLEXERIL [Concomitant]
     Indication: MIGRAINE
     Dosage: UNK, PRN
     Route: 048
     Dates: start: 20100201
  5. PREDNISONE [Concomitant]
     Dosage: UNK
     Dates: start: 20100201
  6. ELAVIL [Concomitant]
     Indication: MIGRAINE
     Dosage: 25 MG, QD
     Route: 048
     Dates: start: 20100201
  7. PHENERGAN [Concomitant]
     Indication: NAUSEA
     Dosage: 25 MG, PRN
     Route: 048
  8. PHENERGAN [Concomitant]
     Indication: MIGRAINE
  9. PROPRANOLOL HYDROCHLORIDE [Concomitant]
     Indication: MIGRAINE PROPHYLAXIS
     Dosage: 80 MG, DAILY
     Route: 048
  10. AMITRIPTYLINE HCL [Concomitant]
     Dosage: 25 MG, HS
     Route: 048
  11. FENTANYL [Concomitant]
     Indication: PAIN
  12. DILAUDID [Concomitant]
     Indication: PAIN
  13. VICODIN [Concomitant]
     Indication: PAIN
     Dosage: 1 TO 2 TABLETS, EVERY 6 HOURS AS NEEDED
     Route: 048
  14. IBUPROFEN [Concomitant]
     Indication: PAIN
     Dosage: 1 TAB, EVERY 8 HOURS AS NEEDED
     Route: 048
  15. DOCUSATE [Concomitant]
     Dosage: THREE TIMES DAILY
     Route: 048

REACTIONS (8)
  - Gallbladder disorder [None]
  - Cholecystitis chronic [None]
  - Pain [None]
  - Emotional distress [None]
  - Anxiety [None]
  - General physical health deterioration [None]
  - Injury [None]
  - Anhedonia [None]
